FAERS Safety Report 4541661-6 (Version None)
Quarter: 2004Q4

REPORT INFORMATION
  Report Type: 
  Country: None (occurrence: None)
  Receive Date: 20041227
  Receipt Date: 20041214
  Transmission Date: 20050328
  Serious: Yes (Life-Threatening, Hospitalization)
  Sender: FDA-Public Use
  Company Number: D01200405327

PATIENT
  Age: 68 Year
  Sex: Male
  Weight: 58.5 kg

DRUGS (9)
  1. CISPLATIN [Suspect]
     Indication: CARCINOMA
     Dosage: 50 MG/M2 OTHER  - INTRAVENOUS NOS
     Route: 042
     Dates: start: 20041118, end: 20041118
  2. RADIOTHERAPY [Concomitant]
  3. PANTOPRAZOLE SODIUM [Concomitant]
  4. TORSEMIDE [Concomitant]
  5. VITAMIN B COMPLEX CAP [Concomitant]
  6. ONDANSETRON HCL [Concomitant]
  7. METOCLOPRAMIDE HYDROCHLORIDE [Concomitant]
  8. HEPARIN-FRACTION, SODIUM SALT [Concomitant]
  9. TRAMADOL HCL [Concomitant]

REACTIONS (10)
  - ATRIAL FIBRILLATION [None]
  - CARDIAC FAILURE [None]
  - HYPOTENSION [None]
  - OXYGEN SATURATION DECREASED [None]
  - PNEUMONIA [None]
  - PULMONARY CONGESTION [None]
  - PULMONARY OEDEMA [None]
  - RENAL FAILURE [None]
  - RESPIRATORY FAILURE [None]
  - TACHYCARDIA [None]
